FAERS Safety Report 17912358 (Version 1)
Quarter: 2020Q2

REPORT INFORMATION
  Report Type: Spontaneous
  Country: US (occurrence: US)
  Receive Date: 20200618
  Receipt Date: 20200618
  Transmission Date: 20200714
  Serious: No
  Sender: FDA-Public Use
  Company Number: None

PATIENT
  Age: 60 Year
  Sex: Female
  Weight: 62.1 kg

DRUGS (5)
  1. NP THYROID [Concomitant]
     Active Substance: LEVOTHYROXINE\LIOTHYRONINE
  2. PERFECT FAMULY MULTIVITAMIN [Concomitant]
  3. PROGESTERONE. [Concomitant]
     Active Substance: PROGESTERONE
  4. NP THYROID [Suspect]
     Active Substance: LEVOTHYROXINE\LIOTHYRONINE
     Indication: HYPOTHYROIDISM
     Dosage: ?          QUANTITY:90 TABLET(S);?
     Route: 048
  5. ESTROGEN [Concomitant]
     Active Substance: ESTROGENS

REACTIONS (10)
  - Myalgia [None]
  - Chest pain [None]
  - Hyperthyroidism [None]
  - Muscular weakness [None]
  - Thyroid function test abnormal [None]
  - Headache [None]
  - Tachyphrenia [None]
  - Middle insomnia [None]
  - Recalled product administered [None]
  - Heart rate increased [None]

NARRATIVE: CASE EVENT DATE: 20191014
